FAERS Safety Report 5261898-0 (Version None)
Quarter: 2007Q1

REPORT INFORMATION
  Report Type: 
  Country: None (occurrence: None)
  Receive Date: 20070310
  Receipt Date: 20070228
  Transmission Date: 20070707
  Serious: Yes (Other)
  Sender: FDA-Public Use
  Company Number: 2006UW06078

PATIENT
  Age: 17519 Day
  Sex: Male
  Weight: 126.8 kg

DRUGS (3)
  1. SEROQUEL [Suspect]
     Indication: BIPOLAR DISORDER
     Route: 048
     Dates: start: 19960101, end: 20050101
  2. ZYPREXA [Concomitant]
     Dates: start: 20000101, end: 20050101
  3. PAXIL [Concomitant]
     Dates: start: 19990101

REACTIONS (5)
  - BLOOD CHOLESTEROL INCREASED [None]
  - BLOOD TRIGLYCERIDES INCREASED [None]
  - DIABETES MELLITUS [None]
  - OBESITY [None]
  - PANCREATITIS [None]
